FAERS Safety Report 17759934 (Version 2)
Quarter: 2020Q2

REPORT INFORMATION
  Report Type: Report from Study
  Country: US (occurrence: US)
  Receive Date: 20200508
  Receipt Date: 20200519
  Transmission Date: 20200714
  Serious: Yes (Other)
  Sender: FDA-Public Use
  Company Number: US-ROCHE-2584104

PATIENT
  Sex: Male

DRUGS (2)
  1. ESBRIET [Suspect]
     Active Substance: PIRFENIDONE
     Indication: IDIOPATHIC PULMONARY FIBROSIS
     Route: 048
     Dates: start: 20200223, end: 20200314
  2. OFEV [Concomitant]
     Active Substance: NINTEDANIB
     Dosage: ONGOING: NO
     Route: 065

REACTIONS (10)
  - Sunburn [Not Recovered/Not Resolved]
  - Ill-defined disorder [Not Recovered/Not Resolved]
  - Erythema [Not Recovered/Not Resolved]
  - Burning sensation [Unknown]
  - Rash [Not Recovered/Not Resolved]
  - Sunburn [Unknown]
  - Pruritus [Not Recovered/Not Resolved]
  - Blister [Unknown]
  - Rash macular [Not Recovered/Not Resolved]
  - Swelling [Unknown]
